FAERS Safety Report 9542477 (Version 3)
Quarter: 2013Q4

REPORT INFORMATION
  Report Type: Report from Study
  Country: US (occurrence: US)
  Receive Date: 20130923
  Receipt Date: 20131119
  Transmission Date: 20140711
  Serious: Yes (Other)
  Sender: FDA-Public Use
  Company Number: US-SANOFI-AVENTIS-2013SA064603

PATIENT
  Sex: Female

DRUGS (3)
  1. AUBAGIO [Suspect]
     Indication: MULTIPLE SCLEROSIS
     Dosage: PRODUCT START DATE : SIX MONTH AGO
     Route: 048
     Dates: start: 20130117, end: 20131104
  2. DIPHENHYDRAMINE HYDROCHLORIDE [Concomitant]
  3. EPHEDRINE [Concomitant]

REACTIONS (5)
  - Fall [Unknown]
  - Multiple sclerosis relapse [Unknown]
  - Rash pruritic [Not Recovered/Not Resolved]
  - Acne [Recovered/Resolved]
  - Alopecia [Not Recovered/Not Resolved]
